FAERS Safety Report 6037941-8 (Version None)
Quarter: 2009Q1

REPORT INFORMATION
  Report Type: 
  Country: None (occurrence: None)
  Receive Date: 20090113
  Receipt Date: 20090113
  Transmission Date: 20090719
  Serious: No
  Sender: FDA-Public Use
  Company Number: None

PATIENT

DRUGS (2)
  1. GLUCOPHAGE [Suspect]
  2. METFORMIN HCL [Suspect]

REACTIONS (5)
  - ANOREXIA [None]
  - DIVERTICULITIS [None]
  - GASTRIC DISORDER [None]
  - ILEAL ULCER [None]
  - PRODUCT QUALITY ISSUE [None]
